FAERS Safety Report 20950770 (Version 1)
Quarter: 2022Q2

REPORT INFORMATION
  Report Type: Other
  Country: US (occurrence: US)
  Receive Date: 20220613
  Receipt Date: 20220613
  Transmission Date: 20220721
  Serious: Yes (Hospitalization, Disabling)
  Sender: FDA-Public Use
  Company Number: US-DEXPHARM-20220886

PATIENT
  Age: 94 Year
  Sex: Male

DRUGS (11)
  1. DONEPEZIL [Suspect]
     Active Substance: DONEPEZIL
     Indication: Dementia
  2. TYLENOL [Concomitant]
     Active Substance: ACETAMINOPHEN
  3. ASPIRIN [Concomitant]
     Active Substance: ASPIRIN
  4. FINASTERIDE [Concomitant]
     Active Substance: FINASTERIDE
  5. MELATONIN [Concomitant]
     Active Substance: MELATONIN
  6. MIRTAZAPINE [Concomitant]
     Active Substance: MIRTAZAPINE
  7. Senna-alexandrina [Concomitant]
  8. PEG 3350 [Concomitant]
     Active Substance: POLYETHYLENE GLYCOL 3350
  9. SIMVASTATIN [Concomitant]
     Active Substance: SIMVASTATIN
  10. VITAMIN D [Concomitant]
     Active Substance: VITAMIN D NOS
  11. VITAMIN B12 [Concomitant]
     Active Substance: CYANOCOBALAMIN

REACTIONS (3)
  - Neurotoxicity [Recovering/Resolving]
  - Condition aggravated [Recovering/Resolving]
  - Fall [Recovered/Resolved]
